FAERS Safety Report 10542100 (Version 4)
Quarter: 2018Q2

REPORT INFORMATION
  Report Type: Report from Study
  Country: FR (occurrence: FR)
  Receive Date: 20141024
  Receipt Date: 20180601
  Transmission Date: 20180711
  Serious: Yes (Death, Other)
  Sender: FDA-Public Use
  Company Number: FR-GILEAD-2014-0119848

PATIENT
  Age: 75 Year
  Sex: Male

DRUGS (6)
  1. SOLU-MEDROL [Concomitant]
     Active Substance: METHYLPREDNISOLONE SODIUM SUCCINATE
     Indication: ANAEMIA
     Dosage: UNK
     Route: 065
     Dates: start: 20140914
  2. IDELALISIB [Suspect]
     Active Substance: IDELALISIB
     Indication: CHRONIC LYMPHOCYTIC LEUKAEMIA
     Dosage: 150 MG, UNK
     Route: 048
     Dates: start: 20140924, end: 20141002
  3. TOPALGIC                           /00599202/ [Concomitant]
     Active Substance: TRAMADOL HYDROCHLORIDE
     Indication: PAIN
     Dosage: UNK
     Route: 065
     Dates: start: 20140914
  4. LEDERFOLINE [Concomitant]
     Active Substance: LEUCOVORIN CALCIUM
     Indication: HAEMOLYSIS
     Dosage: UNK
     Route: 065
     Dates: start: 20140914, end: 20141003
  5. SCOBUREN [Concomitant]
     Active Substance: BUTYLSCOPOLAMINE
     Indication: PULMONARY CONGESTION
     Dosage: UNK
     Route: 065
     Dates: start: 20141002
  6. RITUXIMAB. [Suspect]
     Active Substance: RITUXIMAB
     Indication: CHRONIC LYMPHOCYTIC LEUKAEMIA
     Dosage: 375 MG, ONCE
     Route: 042
     Dates: start: 20140922, end: 20140922

REACTIONS (2)
  - Jaundice cholestatic [Fatal]
  - Intentional product misuse [Unknown]

NARRATIVE: CASE EVENT DATE: 20141002
